FAERS Safety Report 4707832-0 (Version None)
Quarter: 2005Q3

REPORT INFORMATION
  Report Type: 
  Country: None (occurrence: None)
  Receive Date: 20050705
  Receipt Date: 20050705
  Transmission Date: 20060218
  Serious: No
  Sender: FDA-Public Use
  Company Number: None

PATIENT
  Sex: Male
  Weight: 108.8633 kg

DRUGS (1)
  1. METHYLPREDNISOLONE   500 MG    PHARMACIA + UPJOHN [Suspect]
     Indication: JUVENILE ARTHRITIS
     Dosage: 500 MG   Q 28 DAYS   INTRAVENOU
     Route: 042
     Dates: start: 20050701, end: 20050701

REACTIONS (5)
  - COUGH [None]
  - ERYTHEMA [None]
  - INFUSION RELATED REACTION [None]
  - NAUSEA [None]
  - THROAT TIGHTNESS [None]
